FAERS Safety Report 19246753 (Version 12)
Quarter: 2024Q1

REPORT INFORMATION
  Report Type: Report from Study
  Country: US (occurrence: US)
  Receive Date: 20210512
  Receipt Date: 20240327
  Transmission Date: 20240409
  Serious: Yes (Other)
  Sender: FDA-Public Use
  Company Number: US-TAKEDA-US202018638

PATIENT
  Sex: Female

DRUGS (6)
  1. HUMAN IMMUNOGLOBULIN G [Suspect]
     Active Substance: HUMAN IMMUNOGLOBULIN G
     Indication: Immunodeficiency common variable
     Dosage: 35 GRAM, MONTHLY
     Route: 042
  2. HUMAN IMMUNOGLOBULIN G [Suspect]
     Active Substance: HUMAN IMMUNOGLOBULIN G
     Indication: Primary immunodeficiency syndrome
     Dosage: 35 GRAM, Q4WEEKS
     Route: 042
  3. HUMAN IMMUNOGLOBULIN G [Suspect]
     Active Substance: HUMAN IMMUNOGLOBULIN G
     Dosage: 30 GRAM
     Route: 042
  4. HUMAN IMMUNOGLOBULIN G [Suspect]
     Active Substance: HUMAN IMMUNOGLOBULIN G
     Dosage: 25 GRAM, MONTHLY
     Route: 042
  5. HYQVIA [Suspect]
     Active Substance: HUMAN IMMUNOGLOBULIN G\HYALURONIDASE (HUMAN RECOMBINANT)
     Indication: Primary immunodeficiency syndrome
     Dosage: 12 GRAM, Q2WEEKS
     Route: 065
  6. HYQVIA [Suspect]
     Active Substance: HUMAN IMMUNOGLOBULIN G\HYALURONIDASE (HUMAN RECOMBINANT)
     Indication: Immunodeficiency common variable

REACTIONS (44)
  - Atypical pneumonia [Unknown]
  - Precancerous condition [Unknown]
  - Obstruction [Recovering/Resolving]
  - Influenza [Recovering/Resolving]
  - Chills [Recovering/Resolving]
  - Mass [Unknown]
  - Joint swelling [Unknown]
  - Infusion related reaction [Unknown]
  - Device issue [Unknown]
  - Poor venous access [Unknown]
  - Catheter site bruise [Unknown]
  - Cellulitis [Unknown]
  - Infusion site phlebitis [Unknown]
  - Fatigue [Unknown]
  - Pyrexia [Recovering/Resolving]
  - Vomiting [Unknown]
  - Infusion site pruritus [Unknown]
  - Infusion site pain [Unknown]
  - Blood pressure increased [Unknown]
  - Cough [Unknown]
  - Pain [Unknown]
  - Tooth infection [Unknown]
  - Infection [Unknown]
  - Blood parathyroid hormone increased [Unknown]
  - Hair growth abnormal [Unknown]
  - Dry throat [Unknown]
  - Throat irritation [Unknown]
  - Dehydration [Unknown]
  - Exposure to extreme temperature [Unknown]
  - Respiratory tract congestion [Recovering/Resolving]
  - Blood calcium increased [Unknown]
  - Nasopharyngitis [Unknown]
  - Illness [Unknown]
  - Upper respiratory tract infection [Unknown]
  - Sinusitis [Unknown]
  - Palpitations [Unknown]
  - Dizziness [Unknown]
  - Headache [Recovering/Resolving]
  - Migraine [Unknown]
  - Nausea [Unknown]
  - Oropharyngeal pain [Unknown]
  - Incorrect dose administered [Unknown]
  - Inappropriate schedule of product administration [Unknown]
  - Incorrect drug administration rate [Unknown]

NARRATIVE: CASE EVENT DATE: 20190101
